FAERS Safety Report 19160538 (Version 1)
Quarter: 2021Q2

REPORT INFORMATION
  Report Type: Report from Study
  Country: None (occurrence: BR)
  Receive Date: 20210421
  Receipt Date: 20210421
  Transmission Date: 20210717
  Serious: Yes (Disabling)
  Sender: FDA-Public Use
  Company Number: BR-ABBVIE-21K-020-3862527-00

PATIENT
  Age: 50 Year
  Sex: Female
  Weight: 50 kg

DRUGS (6)
  1. METHOTREXATE. [Concomitant]
     Active Substance: METHOTREXATE
     Indication: PSORIATIC ARTHROPATHY
     Dosage: UNSPECIFIED DOSE
     Route: 065
  2. ENALAPRIL [Concomitant]
     Active Substance: ENALAPRIL
     Indication: HYPERTENSION
     Dosage: UNSPECIFIED DOSE    WHEN EXPERIENCES HIGH BLOOD PRESSURE
     Route: 048
  3. ENALAPRIL [Concomitant]
     Active Substance: ENALAPRIL
     Indication: HYPERTENSION
  4. HUMIRA [Suspect]
     Active Substance: ADALIMUMAB
     Indication: PSORIATIC ARTHROPATHY
     Dosage: UNSPECIFIED DOSE  BETWEEN 2019 OR 2018
     Route: 058
     Dates: start: 20121126, end: 2018
  5. SIMVASTATIN. [Concomitant]
     Active Substance: SIMVASTATIN
     Indication: BLOOD CHOLESTEROL
     Dosage: UNSPECIFIED DOSE     ONE TABLET
     Route: 048
  6. HUMIRA [Suspect]
     Active Substance: ADALIMUMAB
     Dosage: UNSPECIFIED DOSE
     Route: 058

REACTIONS (9)
  - Musculoskeletal stiffness [Unknown]
  - Arthralgia [Not Recovered/Not Resolved]
  - Peripheral swelling [Recovered/Resolved]
  - Drug ineffective [Unknown]
  - Gait inability [Unknown]
  - Bedridden [Unknown]
  - Dengue fever [Unknown]
  - Peripheral swelling [Unknown]
  - Arthropathy [Not Recovered/Not Resolved]

NARRATIVE: CASE EVENT DATE: 2018
